FAERS Safety Report 7620186-5 (Version None)
Quarter: 2011Q3

REPORT INFORMATION
  Report Type: 
  Country: None (occurrence: None)
  Receive Date: 20110719
  Receipt Date: 20110705
  Transmission Date: 20111222
  Serious: Yes (Other)
  Sender: FDA-Public Use
  Company Number: PHFR2011GB04058

PATIENT
  Sex: Female

DRUGS (3)
  1. DEPAKOTE [Concomitant]
  2. FLUOXETINE [Concomitant]
  3. CLOZAPINE [Suspect]
     Indication: SCHIZOPHRENIA
     Route: 048
     Dates: start: 20110615, end: 20110701

REACTIONS (9)
  - OXYGEN SATURATION DECREASED [None]
  - SKIN HAEMORRHAGE [None]
  - AGNOSIA [None]
  - PYREXIA [None]
  - HEART RATE INCREASED [None]
  - CONFUSIONAL STATE [None]
  - PRURITUS [None]
  - DISORIENTATION [None]
  - HYPERTENSION [None]
